FAERS Safety Report 8275984-4 (Version None)
Quarter: 2012Q2

REPORT INFORMATION
  Report Type: 
  Country: None (occurrence: None)
  Receive Date: 20120412
  Receipt Date: 20120406
  Transmission Date: 20120825
  Serious: Yes (Other)
  Sender: FDA-Public Use
  Company Number: US-PFIZER INC-2012077136

PATIENT
  Sex: Male
  Weight: 94.5 kg

DRUGS (9)
  1. METFORMIN [Concomitant]
     Indication: TYPE 2 DIABETES MELLITUS
     Dosage: UNK
  2. GLYBURIDE [Concomitant]
     Indication: TYPE 2 DIABETES MELLITUS
     Dosage: UNK
  3. DIPYRIDAMOLE [Concomitant]
     Indication: ATRIAL FIBRILLATION
     Dosage: 25 MG, 2X/DAY
  4. GABAPENTIN [Concomitant]
     Indication: DIABETIC NEUROPATHY
     Dosage: 300 MG, 1X/DAY AT BEDTIME
  5. DIGOXIN [Concomitant]
     Dosage: UNK
  6. DIOVAN [Concomitant]
     Dosage: UNK
  7. SUTENT [Suspect]
     Indication: METASTATIC RENAL CELL CARCINOMA
     Dosage: 50 MG, UNK
     Dates: start: 20120317
  8. LUPRON [Concomitant]
     Indication: PROSTATE CANCER
     Dosage: 1 INJECTION, EVERY 4 MONTHS
  9. ACETYLSALICYLIC ACID [Concomitant]
     Indication: ATRIAL FIBRILLATION
     Dosage: 81 MG, DAILY

REACTIONS (8)
  - ASTHENIA [None]
  - FEELING ABNORMAL [None]
  - ARTHROPATHY [None]
  - DIARRHOEA [None]
  - BLOOD PRESSURE INCREASED [None]
  - BLOOD GLUCOSE DECREASED [None]
  - HYPERGLYCAEMIA [None]
  - PAIN [None]
